FAERS Safety Report 25226641 (Version 1)
Quarter: 2025Q2

REPORT INFORMATION
  Report Type: Spontaneous
  Country: JP (occurrence: JP)
  Receive Date: 20250422
  Receipt Date: 20250422
  Transmission Date: 20250717
  Serious: Yes (Hospitalization)
  Sender: AMGEN
  Company Number: JP-AMGEN-JPNSP2025077194

PATIENT

DRUGS (1)
  1. EVENITY [Suspect]
     Active Substance: ROMOSOZUMAB-AQQG
     Indication: Product used for unknown indication
     Route: 058

REACTIONS (6)
  - Pneumonia aspiration [Unknown]
  - Chondrocalcinosis [Unknown]
  - Cellulitis [Unknown]
  - Arthritis [Unknown]
  - Feeling hot [Unknown]
  - Hypocalcaemia [Unknown]
